FAERS Safety Report 7357513-2 (Version None)
Quarter: 2011Q1

REPORT INFORMATION
  Report Type: 
  Country: None (occurrence: None)
  Receive Date: 20110314
  Receipt Date: 20110314
  Transmission Date: 20110831
  Serious: Yes (Other)
  Sender: FDA-Public Use
  Company Number: None

PATIENT
  Age: 37 Year
  Sex: Male
  Weight: 81.6475 kg

DRUGS (1)
  1. PATADAY [Suspect]
     Indication: EYE PRURITUS
     Dosage: 1 DROP ONCE DAILY TOP
     Route: 061
     Dates: start: 20110307, end: 20110312

REACTIONS (1)
  - HEADACHE [None]
